FAERS Safety Report 24029031 (Version 3)
Quarter: 2025Q1

REPORT INFORMATION
  Report Type: Report from Study
  Country: JP (occurrence: JP)
  Receive Date: 20240628
  Receipt Date: 20250114
  Transmission Date: 20250409
  Serious: Yes (Other)
  Sender: MERZ
  Company Number: JP-teijin-202402170_XEO_P_1

PATIENT

DRUGS (3)
  1. XEOMIN [Suspect]
     Active Substance: INCOBOTULINUMTOXINA
     Indication: Muscle spasticity
     Dosage: 50 INTERNATIONAL UNIT
     Route: 030
     Dates: start: 20231220, end: 20231220
  2. XEOMIN [Suspect]
     Active Substance: INCOBOTULINUMTOXINA
     Dosage: 50 INTERNATIONAL UNIT
     Route: 030
     Dates: start: 20240604, end: 20240604
  3. XEOMIN [Suspect]
     Active Substance: INCOBOTULINUMTOXINA
     Dosage: 50 INTERNATIONAL UNIT
     Route: 030
     Dates: start: 20241125, end: 20241125

REACTIONS (5)
  - Epilepsy [Recovering/Resolving]
  - Pneumonia aspiration [Recovered/Resolved]
  - Pneumonia aspiration [Recovered/Resolved]
  - Blister [Recovering/Resolving]
  - Cellulitis [Recovered/Resolved]

NARRATIVE: CASE EVENT DATE: 20240105
